FAERS Safety Report 17284991 (Version 1)
Quarter: 2020Q1

REPORT INFORMATION
  Report Type: Other
  Country: US (occurrence: US)
  Receive Date: 20200117
  Receipt Date: 20200117
  Transmission Date: 20200409
  Serious: No
  Sender: FDA-Public Use
  Company Number: US-ORIT LABORATORIES LLC-2079148

PATIENT
  Age: 58 Year
  Sex: Female
  Weight: 60.91 kg

DRUGS (2)
  1. TAPAZOLE [Concomitant]
     Active Substance: METHIMAZOLE
     Route: 048
     Dates: start: 20181221
  2. ERGOCALCIFEROL. [Suspect]
     Active Substance: ERGOCALCIFEROL
     Indication: FIBROMYALGIA
     Route: 048
     Dates: start: 20181221

REACTIONS (1)
  - Gingival discolouration [Not Recovered/Not Resolved]

NARRATIVE: CASE EVENT DATE: 20181221
